FAERS Safety Report 12099572 (Version 3)
Quarter: 2017Q1

REPORT INFORMATION
  Report Type: Report from Study
  Country: CO (occurrence: CO)
  Receive Date: 20160222
  Receipt Date: 20170303
  Transmission Date: 20170428
  Serious: Yes (Other)
  Sender: FDA-Public Use
  Company Number: PHHY2016CO022983

PATIENT
  Age: 34 Year
  Sex: Female
  Weight: 95 kg

DRUGS (8)
  1. SANDOSTATIN LAR DEPOT [Suspect]
     Active Substance: OCTREOTIDE ACETATE
     Dosage: 40 MG, QMO (TWO AMPOULES OF 20 MG)
     Route: 030
     Dates: start: 20151015
  2. FENOFIBRATE. [Concomitant]
     Active Substance: FENOFIBRATE
     Indication: PRODUCT USED FOR UNKNOWN INDICATION
     Dosage: 200 MG, QD
     Route: 065
  3. METFORMIN [Concomitant]
     Active Substance: METFORMIN HYDROCHLORIDE
     Indication: PRODUCT USED FOR UNKNOWN INDICATION
     Dosage: 850 MG, Q12H
     Route: 065
  4. ATORVASTATIN [Concomitant]
     Active Substance: ATORVASTATIN
     Indication: PRODUCT USED FOR UNKNOWN INDICATION
     Dosage: 30 MG, QHS
     Route: 065
  5. LEVOTHYROXINE. [Concomitant]
     Active Substance: LEVOTHYROXINE
     Indication: PRODUCT USED FOR UNKNOWN INDICATION
     Dosage: 50 MG 1DAILY, 25 MG EVERY OTHER DAY
     Route: 065
  6. SANDOSTATIN LAR DEPOT [Suspect]
     Active Substance: OCTREOTIDE ACETATE
     Indication: ACROMEGALY
     Dosage: 40 MG, QMO (TWO AMPOULES OF 20 MG)
     Route: 030
     Dates: start: 20050107
  7. SANDOSTATIN LAR DEPOT [Suspect]
     Active Substance: OCTREOTIDE ACETATE
     Dosage: 40 MG, QMO (TWO AMPOULES OF 20 MG)
     Route: 030
     Dates: start: 201601, end: 20170210
  8. LANREOTIDE [Suspect]
     Active Substance: LANREOTIDE
     Indication: PRODUCT USED FOR UNKNOWN INDICATION
     Route: 065

REACTIONS (19)
  - Nausea [Recovering/Resolving]
  - Pyrexia [Recovering/Resolving]
  - Vomiting [Recovering/Resolving]
  - Somnolence [Unknown]
  - Zika virus infection [Recovering/Resolving]
  - Diarrhoea [Recovering/Resolving]
  - Burning sensation [Recovering/Resolving]
  - Cough [Recovering/Resolving]
  - Influenza [Unknown]
  - Ocular hyperaemia [Recovering/Resolving]
  - Pain in extremity [Recovering/Resolving]
  - Rash [Recovering/Resolving]
  - Pruritus [Recovering/Resolving]
  - Abdominal pain upper [Unknown]
  - Lip dry [Unknown]
  - Pain [Recovering/Resolving]
  - Headache [Recovering/Resolving]
  - Malaise [Unknown]
  - Feeling of despair [Recovering/Resolving]

NARRATIVE: CASE EVENT DATE: 201510
